FAERS Safety Report 9233927 (Version 2)
Quarter: 2013Q2

REPORT INFORMATION
  Report Type: Report from Study
  Country: US (occurrence: US)
  Receive Date: 20130416
  Receipt Date: 20130423
  Transmission Date: 20140414
  Serious: No
  Sender: FDA-Public Use
  Company Number: US-VERTEX PHARMACEUTICALS INC.-2013-004666

PATIENT
  Age: 59 Year
  Sex: Male

DRUGS (22)
  1. VX-950 (TELAPREVIR) [Suspect]
     Indication: HEPATITIS C
     Dosage: 3 TABS QAM 3 TABS QPM
     Route: 048
     Dates: start: 20130318
  2. PEGASYS [Suspect]
     Indication: HEPATITIS C
     Dosage: 180 ?G, QW
     Route: 058
     Dates: start: 20130318
  3. RIBAVIRIN [Suspect]
     Indication: HEPATITIS C
     Dosage: 600MG QAM, 400MG QPM
     Dates: start: 20130318
  4. RIBAVIRIN [Suspect]
     Dosage: 600 MG, QD
  5. TYLENOL [Concomitant]
     Dosage: 325 MG
  6. TRUVADA [Concomitant]
  7. ISENTRESS [Concomitant]
     Dosage: 400 MG
  8. COREG CR [Concomitant]
     Dosage: 20 MG
  9. CLARITIN [Concomitant]
     Dosage: 10 MG
  10. SAW PALMETTO [Concomitant]
     Dosage: 1000 MG
  11. VITAMIN D3 [Concomitant]
     Dosage: 400 UNIT
  12. MULTIVITAMIN [Concomitant]
  13. PROBIOTIC [Concomitant]
  14. GINGER [Concomitant]
     Dosage: 500 MG
  15. DIGESTIVE ENZYMES [Concomitant]
  16. CAL-MAG-ZINC [Concomitant]
  17. SELENIUM [Concomitant]
     Dosage: 50 MCG
  18. NAC [Concomitant]
     Dosage: 600 MG
  19. CO Q 10 [Concomitant]
     Dosage: 10 MG
  20. PRIMROSE OIL [Concomitant]
  21. MARGICARE [Concomitant]
  22. TRANQUIL [Concomitant]

REACTIONS (7)
  - Influenza like illness [Unknown]
  - Myopia [Unknown]
  - Blood calcium decreased [Unknown]
  - Blood sodium decreased [Unknown]
  - Asthenia [Unknown]
  - Anaemia [Unknown]
  - Nausea [Unknown]
